FAERS Safety Report 23571924 (Version 3)
Quarter: 2024Q1

REPORT INFORMATION
  Report Type: Spontaneous
  Country: GB (occurrence: GB)
  Receive Date: 20240227
  Receipt Date: 20240312
  Transmission Date: 20240409
  Serious: Yes (Hospitalization, Other)
  Sender: FDA-Public Use
  Company Number: GB-PFM-2024-00739

PATIENT
  Age: 8 Year
  Sex: Male
  Weight: 30.3 kg

DRUGS (2)
  1. BINIMETINIB [Suspect]
     Active Substance: BINIMETINIB
     Indication: Neurofibromatosis
     Dosage: 30 MG, BID (2/DAY)
     Route: 048
     Dates: start: 20240108
  2. BINIMETINIB [Suspect]
     Active Substance: BINIMETINIB
     Dosage: 30 MG, BID (2/DAY)
     Route: 048
     Dates: end: 20240217

REACTIONS (13)
  - Mucosal inflammation [Recovered/Resolved]
  - Blood creatine phosphokinase increased [Recovering/Resolving]
  - Pneumonia [Recovered/Resolved]
  - Blood creatine phosphokinase increased [Recovering/Resolving]
  - Rash [Recovering/Resolving]
  - Paronychia [Recovered/Resolved]
  - Product administered to patient of inappropriate age [Unknown]
  - Product use in unapproved indication [Unknown]
  - Product use issue [Unknown]
  - Off label use [Unknown]
  - Pyrexia [Recovered/Resolved]
  - Blood creatine phosphokinase increased [Recovering/Resolving]
  - Rash [Recovering/Resolving]

NARRATIVE: CASE EVENT DATE: 20240108
